FAERS Safety Report 6972434-2 (Version None)
Quarter: 2010Q3

REPORT INFORMATION
  Report Type: 
  Country: None (occurrence: None)
  Receive Date: 20100908
  Receipt Date: 20100908
  Transmission Date: 20110219
  Serious: Yes (Other)
  Sender: FDA-Public Use
  Company Number: None

PATIENT
  Sex: Male

DRUGS (1)
  1. TEGRETOL-XR [Suspect]
     Indication: EPILEPSY
     Dates: start: 20100419

REACTIONS (2)
  - PRODUCT SUBSTITUTION ISSUE [None]
  - SELF INJURIOUS BEHAVIOUR [None]
